FAERS Safety Report 9707404 (Version 1)
Quarter: 2013Q4

REPORT INFORMATION
  Report Type: Spontaneous
  Country: US (occurrence: US)
  Receive Date: 20131125
  Receipt Date: 20131125
  Transmission Date: 20140711
  Serious: No
  Sender: FDA-Public Use
  Company Number: US-TEVA-374151USA

PATIENT
  Age: 31 Year
  Sex: Female
  Weight: 41.31 kg

DRUGS (5)
  1. PARAGARD 380A [Suspect]
     Indication: CONTRACEPTION
     Route: 015
     Dates: start: 20121023
  2. PARAGARD 380A [Suspect]
     Indication: ACNE
  3. MULTIVITAMINS [Concomitant]
     Indication: NUTRITIONAL SUPPLEMENTATION
  4. LUTEIN [Concomitant]
     Indication: NUTRITIONAL SUPPLEMENTATION
  5. CALCIUM [Concomitant]
     Indication: NUTRITIONAL SUPPLEMENTATION

REACTIONS (2)
  - Pelvic pain [Recovered/Resolved]
  - Device expulsion [Not Recovered/Not Resolved]
